FAERS Safety Report 6749713 (Version 2)
Quarter: 2017Q1

REPORT INFORMATION
  Report Type: Spontaneous
  Country: FR (occurrence: FR)
  Receive Date: 20080905
  Receipt Date: 20170214
  Transmission Date: 20170429
  Serious: Yes (Other)
  Sender: FDA-Public Use
  Company Number: FR-PFIZER INC-2008072153

PATIENT
  Age: 69 Year
  Sex: Female

DRUGS (7)
  1. PACLITAXEL. [Interacting]
     Active Substance: PACLITAXEL
     Dosage: 160 MG, CYCLIC
     Route: 042
     Dates: start: 20080618, end: 20080618
  2. CARVEDILOL. [Interacting]
     Active Substance: CARVEDILOL
     Dates: start: 2006
  3. SOLU-MEDROL [Suspect]
     Active Substance: METHYLPREDNISOLONE SODIUM SUCCINATE
     Dosage: 40 MG, CYCLIC
     Route: 042
     Dates: start: 20080618, end: 20080618
  4. AZANTAC [Interacting]
     Active Substance: RANITIDINE HYDROCHLORIDE
     Dosage: 1 DF, SINGLE
     Route: 042
     Dates: start: 20080618, end: 20080618
  5. CORDARONE [Concomitant]
     Active Substance: AMIODARONE HYDROCHLORIDE
     Dates: start: 200803
  6. PREVISCAN /00789001/ [Interacting]
     Active Substance: FLUINDIONE
     Indication: ARRHYTHMIA
     Dosage: 0.25 DF EVERY TWO DAYS AND 0.5 DF EVERY TWO DAYS
     Route: 048
     Dates: start: 20080601, end: 20080620
  7. RENITEC /00574902/ [Concomitant]
     Active Substance: ENALAPRIL MALEATE
     Dates: start: 200803

REACTIONS (2)
  - Drug interaction [Recovered/Resolved]
  - International normalised ratio increased [Recovered/Resolved]

NARRATIVE: CASE EVENT DATE: 20080620
